FAERS Safety Report 9275484 (Version 3)
Quarter: 2013Q3

REPORT INFORMATION
  Report Type: Spontaneous
  Country: US (occurrence: US)
  Receive Date: 20130507
  Receipt Date: 20130725
  Transmission Date: 20140515
  Serious: No
  Sender: FDA-Public Use
  Company Number: US-ROXANE LABORATORIES, INC.-2013-RO-00710RO

PATIENT
  Sex: Female

DRUGS (3)
  1. LIDOCAINE [Suspect]
     Indication: MUCOSAL INFLAMMATION
     Route: 061
     Dates: start: 20120314, end: 20130124
  2. GABAPENTIN [Concomitant]
  3. KADIAN [Concomitant]
     Indication: PAIN

REACTIONS (5)
  - Glossodynia [Recovered/Resolved]
  - Glossitis [Recovered/Resolved]
  - Tongue ulceration [Recovered/Resolved]
  - Drug ineffective [Recovered/Resolved]
  - Product quality issue [Recovered/Resolved]
